FAERS Safety Report 6115211-7 (Version None)
Quarter: 2009Q1

REPORT INFORMATION
  Report Type: 
  Country: None (occurrence: None)
  Receive Date: 20090313
  Receipt Date: 20090302
  Transmission Date: 20090719
  Serious: Yes (Other)
  Sender: FDA-Public Use
  Company Number: JP-PFIZER INC-2009177401

PATIENT

DRUGS (2)
  1. PREDNISOLONE AND PREDNISOLONE STEAGLATE [Suspect]
     Indication: IDIOPATHIC THROMBOCYTOPENIC PURPURA
     Dosage: 30 MG, 1X/DAY
  2. CICLOSPORIN [Concomitant]
     Dosage: 150 MG, 1X/DAY

REACTIONS (2)
  - OSTEONECROSIS [None]
  - TOOTH DISORDER [None]
